FAERS Safety Report 6551745-9 (Version None)
Quarter: 2010Q1

REPORT INFORMATION
  Report Type: 
  Country: None (occurrence: None)
  Receive Date: 20100126
  Receipt Date: 20090119
  Transmission Date: 20100710
  Serious: Yes (Life-Threatening)
  Sender: FDA-Public Use
  Company Number: FR-ROCHE-680993

PATIENT
  Sex: Female

DRUGS (6)
  1. HERCEPTIN [Suspect]
     Indication: BREAST CANCER
     Route: 042
     Dates: start: 20081204, end: 20081204
  2. BACTRIM [Suspect]
     Route: 048
     Dates: start: 20080930, end: 20081201
  3. TAXOTERE [Suspect]
     Indication: BREAST CANCER
     Route: 042
     Dates: start: 20081204, end: 20081204
  4. LEVOTHYROXINE SODIUM [Concomitant]
     Route: 048
  5. KIVEXA [Concomitant]
     Route: 048
  6. KALETRA [Concomitant]
     Route: 048

REACTIONS (1)
  - STEVENS-JOHNSON SYNDROME [None]
